FAERS Safety Report 6107182-4 (Version None)
Quarter: 2009Q1

REPORT INFORMATION
  Report Type: 
  Country: None (occurrence: None)
  Receive Date: 20090309
  Receipt Date: 20090225
  Transmission Date: 20090719
  Serious: Yes (Other)
  Sender: FDA-Public Use
  Company Number: US-BAYER-200914260NA

PATIENT
  Age: 26 Year
  Sex: Female

DRUGS (4)
  1. BETASERON [Suspect]
     Indication: RELAPSING-REMITTING MULTIPLE SCLEROSIS
     Dosage: TOTAL DAILY DOSE: 8 MIU
     Route: 058
  2. BETASERON [Suspect]
     Route: 058
     Dates: start: 20081120
  3. CELEBREX [Concomitant]
     Indication: PREMEDICATION
  4. THYROID SUPPLEMENTS [Concomitant]

REACTIONS (6)
  - CHILLS [None]
  - FEELING ABNORMAL [None]
  - INFLUENZA LIKE ILLNESS [None]
  - LIVER FUNCTION TEST ABNORMAL [None]
  - PYREXIA [None]
  - THYROID DISORDER [None]
